FAERS Safety Report 6309022-7 (Version None)
Quarter: 2009Q3

REPORT INFORMATION
  Report Type: 
  Country: None (occurrence: None)
  Receive Date: 20090814
  Receipt Date: 20080421
  Transmission Date: 20100115
  Serious: Yes (Other)
  Sender: FDA-Public Use
  Company Number: US-ASTRAZENECA-2006UW22991

PATIENT
  Age: 47 Year
  Sex: Female
  Weight: 102.1 kg

DRUGS (12)
  1. SEROQUEL [Suspect]
     Indication: SCHIZOPHRENIA
     Route: 048
     Dates: start: 19990101
  2. SEROQUEL [Suspect]
     Indication: SUICIDAL IDEATION
     Route: 048
     Dates: start: 19990101
  3. SEROQUEL [Suspect]
     Dosage: 50 MG - 600 MG QHS
     Route: 048
     Dates: start: 19990215
  4. SEROQUEL [Suspect]
     Dosage: 50 MG - 600 MG QHS
     Route: 048
     Dates: start: 19990215
  5. CLONAZEPAM [Concomitant]
  6. RISPERDAL [Concomitant]
  7. LIPITOR [Concomitant]
  8. XENICAL [Concomitant]
  9. HALOPERIDOL DECANOATE [Concomitant]
     Dosage: 25 MG, 37.5 MG, 50 MG Q ONE MONTH
     Route: 030
     Dates: start: 19980305
  10. HALDOL [Concomitant]
     Indication: PSYCHOTIC DISORDER
     Dosage: 5 MG - 10 MG AT NIGHT
     Dates: start: 19830118
  11. ABILIFY [Concomitant]
     Dates: start: 20031007
  12. ABILIFY [Concomitant]

REACTIONS (2)
  - DIABETES MELLITUS [None]
  - DIABETIC NEUROPATHY [None]
